FAERS Safety Report 4588364-X (Version None)
Quarter: 2005Q1

REPORT INFORMATION
  Report Type: 
  Country: None (occurrence: None)
  Receive Date: 20050216
  Receipt Date: 20050216
  Transmission Date: 20050727
  Serious: Yes (Hospitalization)
  Sender: FDA-Public Use
  Company Number: None

PATIENT
  Age: 10 Year
  Sex: Male
  Weight: 66.3 kg

DRUGS (1)
  1. HEPARIN LOCK-FLUSH [Suspect]
     Indication: THROMBOSIS PROPHYLAXIS
     Dosage: TIW TO EACH LUMEN
     Dates: start: 20040101

REACTIONS (7)
  - BLOOD CULTURE POSITIVE [None]
  - CENTRAL LINE INFECTION [None]
  - FEELING ABNORMAL [None]
  - PSEUDOMONAS INFECTION [None]
  - PYREXIA [None]
  - SKIN LESION [None]
  - VOMITING [None]
